FAERS Safety Report 14268520 (Version 4)
Quarter: 2018Q2

REPORT INFORMATION
  Report Type: Spontaneous
  Country: US (occurrence: US)
  Receive Date: 20171211
  Receipt Date: 20180606
  Transmission Date: 20180711
  Serious: Yes (Other)
  Sender: FDA-Public Use
  Company Number: PHEH2017US039853

PATIENT
  Sex: Female
  Weight: 77 kg

DRUGS (1)
  1. ZOFRAN ODT [Suspect]
     Active Substance: ONDANSETRON HYDROCHLORIDE
     Indication: VOMITING IN PREGNANCY
     Dosage: 1 DF, TID
     Route: 048
     Dates: start: 201210, end: 201305

REACTIONS (9)
  - Maternal exposure during pregnancy [Unknown]
  - Peripheral swelling [Unknown]
  - Adnexa uteri mass [Unknown]
  - Gestational hypertension [Unknown]
  - Emotional distress [Unknown]
  - Hyperthyroidism [Unknown]
  - Product use in unapproved indication [Unknown]
  - Anogenital warts [Unknown]
  - Urinary tract infection [Unknown]
